APPROVED DRUG PRODUCT: ESTRADIOL
Active Ingredient: ESTRADIOL
Strength: 0.05MG/24HR
Dosage Form/Route: FILM, EXTENDED RELEASE;TRANSDERMAL
Application: A206685 | Product #003 | TE Code: AB3
Applicant: MYLAN TECHNOLOGIES INC
Approved: Aug 15, 2018 | RLD: No | RS: No | Type: RX